FAERS Safety Report 6054368-3 (Version None)
Quarter: 2009Q1

REPORT INFORMATION
  Report Type: 
  Country: None (occurrence: None)
  Receive Date: 20090123
  Receipt Date: 20090123
  Transmission Date: 20090719
  Serious: Yes (Hospitalization)
  Sender: FDA-Public Use
  Company Number: None

PATIENT
  Sex: Male
  Weight: 53.5 kg

DRUGS (1)
  1. REMICADE [Suspect]
     Indication: CROHN'S DISEASE
     Dosage: 10 MG/KG EVERY 3 WEEKS IV
     Route: 042
     Dates: start: 20080401, end: 20080901

REACTIONS (2)
  - ARTHRALGIA [None]
  - PUSTULAR PSORIASIS [None]
